FAERS Safety Report 10663252 (Version 4)
Quarter: 2015Q2

REPORT INFORMATION
  Report Type: Spontaneous
  Country: US (occurrence: US)
  Receive Date: 20141218
  Receipt Date: 20150609
  Transmission Date: 20150821
  Serious: Yes (Other)
  Sender: FDA-Public Use
  Company Number: US-GLAXOSMITHKLINE-A1084842A

PATIENT

DRUGS (2)
  1. VOTRIENT [Suspect]
     Active Substance: PAZOPANIB HYDROCHLORIDE
     Dosage: 600 MG, QD
     Route: 065
  2. VOTRIENT [Suspect]
     Active Substance: PAZOPANIB HYDROCHLORIDE
     Indication: RENAL CANCER
     Dosage: 4 UNK, 1D
     Route: 048
     Dates: start: 20130829

REACTIONS (5)
  - Ill-defined disorder [Unknown]
  - Liver injury [Recovering/Resolving]
  - Diarrhoea [Unknown]
  - Adverse drug reaction [Unknown]
  - Hair colour changes [Recovering/Resolving]
